FAERS Safety Report 25001906 (Version 1)
Quarter: 2025Q1

REPORT INFORMATION
  Report Type: Spontaneous
  Country: US (occurrence: US)
  Receive Date: 20250224
  Receipt Date: 20250224
  Transmission Date: 20250409
  Serious: No
  Sender: JOHNSON AND JOHNSON
  Company Number: US-JNJFOC-20250138707

PATIENT
  Sex: Male

DRUGS (5)
  1. UPTRAVI [Suspect]
     Active Substance: SELEXIPAG
     Indication: Product used for unknown indication
     Route: 048
  2. AMBRISENTAN [Suspect]
     Active Substance: AMBRISENTAN
     Indication: Pulmonary arterial hypertension
     Dates: start: 20181012
  3. TYVASO [Suspect]
     Active Substance: TREPROSTINIL
     Indication: Product used for unknown indication
  4. ADCIRCA [Concomitant]
     Active Substance: TADALAFIL
  5. TADALAFIL [Concomitant]
     Active Substance: TADALAFIL

REACTIONS (4)
  - Cough [Recovering/Resolving]
  - Oropharyngeal discomfort [Recovering/Resolving]
  - Headache [Recovered/Resolved]
  - Swelling face [Unknown]
